FAERS Safety Report 4963688-2 (Version None)
Quarter: 2006Q1

REPORT INFORMATION
  Report Type: 
  Country: None (occurrence: None)
  Receive Date: 20060330
  Receipt Date: 20060323
  Transmission Date: 20060701
  Serious: Yes (Other)
  Sender: FDA-Public Use
  Company Number: 2004082345

PATIENT
  Sex: Female

DRUGS (8)
  1. ZOLOFT [Suspect]
     Indication: ILL-DEFINED DISORDER
  2. METHOTREXATE [Suspect]
     Indication: ILL-DEFINED DISORDER
  3. REMICADE [Suspect]
     Indication: ILL-DEFINED DISORDER
  4. PLAQUENIL [Suspect]
     Indication: ILL-DEFINED DISORDER
  5. ZANAFLEX [Suspect]
     Indication: ILL-DEFINED DISORDER
  6. MORPHINE SULFATE [Concomitant]
  7. KADIAN ^KNOLL^ (MORPHIEN SULFATE) [Concomitant]
  8. NEURONTIN [Concomitant]

REACTIONS (1)
  - NO ADVERSE EFFECT [None]
